FAERS Safety Report 8479750 (Version 4)
Quarter: 2014Q1

REPORT INFORMATION
  Report Type: Spontaneous
  Country: US (occurrence: None)
  Receive Date: 20120320
  Receipt Date: 20140205
  Transmission Date: 20141002
  Serious: Yes (Other)
  Sender: FDA-Public Use
  Company Number: CIP02002304

PATIENT
  Age: 79 Year
  Sex: Female
  Weight: 49.4 kg

DRUGS (10)
  1. ACTONEL [Suspect]
     Indication: OSTEOPOROSIS
     Route: 048
     Dates: start: 2004, end: 20121229
  2. PREDNISONE [Concomitant]
     Indication: OSTEOPOROSIS
  3. PEPCID (FAMOTIDINE) [Concomitant]
  4. FLOVENT (FLUTICASONE PROPIONATE) [Concomitant]
  5. CENTRUM SILVER (ASCORBIC ACID, CALCIUM, MINERALS NOS, RETINOL, TOCOPHERYL ACETATE, VITAMIN B NOS, VITAMINS NOS, ZINC) [Concomitant]
  6. HYDROXYUREA (HYDROXYCARBAMIDE) [Concomitant]
  7. ZITHROMAX (AZITHROMYCIN) [Concomitant]
  8. BABY ASPIRIN (ACETYLSALICYLIC ACID) [Concomitant]
  9. CALCIUM CITRATE [Concomitant]
  10. NONE [Concomitant]

REACTIONS (8)
  - Essential thrombocythaemia [None]
  - Abdominal discomfort [None]
  - Nausea [None]
  - Dyspepsia [None]
  - Eructation [None]
  - Chest pain [None]
  - Blood calcium decreased [None]
  - Oesophageal discomfort [None]
